FAERS Safety Report 15360242 (Version 3)
Quarter: 2018Q3

REPORT INFORMATION
  Report Type: Spontaneous
  Country: US (occurrence: US)
  Receive Date: 20180907
  Receipt Date: 20180922
  Transmission Date: 20181010
  Serious: No
  Sender: FDA-Public Use
  Company Number: US-JNJFOC-20180800405

PATIENT
  Age: 70 Year
  Sex: Female
  Weight: 83.92 kg

DRUGS (1)
  1. KETOCONAZOLE. [Suspect]
     Active Substance: KETOCONAZOLE
     Indication: ECZEMA
     Dosage: 0.02 (UNITS UNSPECIFIED)
     Route: 061

REACTIONS (5)
  - Expired product administered [Unknown]
  - Product container seal issue [Unknown]
  - Product physical consistency issue [Unknown]
  - Product use in unapproved indication [Unknown]
  - Off label use [Unknown]

NARRATIVE: CASE EVENT DATE: 20180730
